FAERS Safety Report 18883060 (Version 1)
Quarter: 2021Q1

REPORT INFORMATION
  Report Type: Spontaneous
  Country: US (occurrence: US)
  Receive Date: 20210211
  Receipt Date: 20210211
  Transmission Date: 20210420
  Serious: Yes (Other)
  Sender: FDA-Public Use
  Company Number: US-TEVA-2021-US-1877195

PATIENT
  Age: 11 Year
  Sex: Female

DRUGS (6)
  1. ALBUTEROL. [Concomitant]
     Active Substance: ALBUTEROL
     Indication: CHRONIC RHINOSINUSITIS WITH NASAL POLYPS
     Dosage: AS REQUIRED
     Route: 065
  2. PREDNISONE. [Suspect]
     Active Substance: PREDNISONE
     Indication: CHRONIC RHINOSINUSITIS WITH NASAL POLYPS
     Dosage: 10 MILLIGRAM DAILY;
     Route: 065
  3. MEPOLIZUMAB [Suspect]
     Active Substance: MEPOLIZUMAB
     Indication: GRANULOMATOSIS WITH POLYANGIITIS
     Route: 065
  4. PREDNISONE. [Suspect]
     Active Substance: PREDNISONE
     Dosage: 25 MILLIGRAM DAILY;
     Route: 065
  5. BUDESONIDE. [Suspect]
     Active Substance: BUDESONIDE
     Indication: CHRONIC RHINOSINUSITIS WITH NASAL POLYPS
     Dosage: SINUS RINSES
     Route: 065
  6. MOMETASONE FUROATE/FORMOTEROL FUMARATE DIHYDRATE [Concomitant]
     Indication: CHRONIC RHINOSINUSITIS WITH NASAL POLYPS
     Dosage: DOSE: 200MCG/5MCG; 2 PUFFS TWICE DAILY
     Route: 065

REACTIONS (2)
  - Drug ineffective [Unknown]
  - Rebound effect [Unknown]
